FAERS Safety Report 16698132 (Version 1)
Quarter: 2019Q3

REPORT INFORMATION
  Report Type: Spontaneous
  Country: US (occurrence: US)
  Receive Date: 20190813
  Receipt Date: 20190813
  Transmission Date: 20191004
  Serious: No
  Sender: FDA-Public Use
  Company Number: US-BRACCO-2019US00189

PATIENT
  Sex: Female

DRUGS (1)
  1. KINEVAC [Suspect]
     Active Substance: SINCALIDE
     Indication: HEPATOBILIARY SCAN
     Dosage: UNK, SINGLE
     Route: 042
     Dates: start: 20190116, end: 20190116

REACTIONS (2)
  - No adverse event [Unknown]
  - Drug ineffective [Unknown]

NARRATIVE: CASE EVENT DATE: 20190116
